FAERS Safety Report 8851824 (Version 1)
Quarter: 2012Q4

REPORT INFORMATION
  Report Type: 
  Country: US (occurrence: US)
  Receive Date: 20121022
  Receipt Date: 20121022
  Transmission Date: 20130627
  Serious: Yes (Other)
  Sender: FDA-Public Use
  Company Number: US-PFIZER INC-2012261023

PATIENT
  Sex: Male

DRUGS (1)
  1. LYRICA [Suspect]
     Indication: NEURALGIA
     Dosage: UNK

REACTIONS (6)
  - Urinary retention [Unknown]
  - Depressed level of consciousness [Unknown]
  - Lethargy [Unknown]
  - Hypotension [Unknown]
  - Incoherent [Recovering/Resolving]
  - Asthenia [Recovering/Resolving]
